FAERS Safety Report 5453190-6 (Version None)
Quarter: 2007Q3

REPORT INFORMATION
  Report Type: 
  Country: None (occurrence: None)
  Receive Date: 20070914
  Receipt Date: 20070607
  Transmission Date: 20080115
  Serious: Yes (Disabling)
  Sender: FDA-Public Use
  Company Number: DE-MERCK-0706USA01465

PATIENT
  Age: 31 Year
  Sex: Male

DRUGS (3)
  1. CUPRIMINE [Suspect]
     Indication: HEPATO-LENTICULAR DEGENERATION
     Route: 048
  2. CUPRIMINE [Suspect]
     Route: 048
  3. ZINC (UNSPECIFIED) [Concomitant]
     Indication: HEPATO-LENTICULAR DEGENERATION
     Route: 048

REACTIONS (2)
  - DRUG INEFFECTIVE [None]
  - HEPATO-LENTICULAR DEGENERATION [None]
